FAERS Safety Report 9223750 (Version 5)
Quarter: 2013Q2

REPORT INFORMATION
  Report Type: Spontaneous
  Country: US (occurrence: US)
  Receive Date: 20130410
  Receipt Date: 20130628
  Transmission Date: 20140414
  Serious: Yes (Death)
  Sender: FDA-Public Use
  Company Number: US-009507513-1304USA003501

PATIENT
  Age: 28 Year
  Sex: Male

DRUGS (5)
  1. SAPHRIS [Suspect]
     Indication: SCHIZOPHRENIA
     Dosage: 10 MG, BID
     Route: 060
     Dates: start: 201204
  2. SAPHRIS [Suspect]
     Dosage: 5 MG, BID
     Route: 060
     Dates: end: 201204
  3. LITHIUM [Concomitant]
     Dosage: UNK MG, UNK
     Route: 048
  4. GABAPENTIN [Concomitant]
     Dosage: UNK MG, UNK
     Route: 048
  5. ZYPREXA [Concomitant]
     Indication: SCHIZOPHRENIA
     Dosage: 30 MG, UNK
     Route: 048

REACTIONS (1)
  - Death [Fatal]
